FAERS Safety Report 18169392 (Version 2)
Quarter: 2022Q3

REPORT INFORMATION
  Report Type: Spontaneous
  Country: CA (occurrence: CA)
  Receive Date: 20200818
  Receipt Date: 20220805
  Transmission Date: 20221027
  Serious: Yes (Other)
  Sender: FDA-Public Use
  Company Number: CA-BAXTER-2020BAX016469

PATIENT

DRUGS (6)
  1. CYCLOPHOSPHAMIDE [Suspect]
     Active Substance: CYCLOPHOSPHAMIDE
     Indication: Clear cell sarcoma of the kidney
     Dosage: DOSAGE FORM: NOT SPECIFIED
     Route: 065
  2. IFOSFAMIDE [Suspect]
     Active Substance: IFOSFAMIDE
     Indication: Clear cell sarcoma of the kidney
     Dosage: USP, DOSAGE FORM: POWDER FOR SOLUTION INTRAVENOUS, INTRAVENOUS (NOT OTHERWISE SPECIFIED)
     Route: 042
  3. DOXORUBICIN HYDROCHLORIDE [Suspect]
     Active Substance: DOXORUBICIN HYDROCHLORIDE
     Indication: Clear cell sarcoma of the kidney
     Route: 065
  4. CARBOPLATIN [Suspect]
     Active Substance: CARBOPLATIN
     Indication: Clear cell sarcoma of the kidney
     Dosage: DOSAGE FORM: SOLUTION INTRAVENOUS, INTRAVENOUS (NOT OTHERWISE SPECIFIED)
     Route: 042
  5. ETOPOSIDE [Suspect]
     Active Substance: ETOPOSIDE
     Indication: Clear cell sarcoma of the kidney
     Dosage: DOSAGE FORM: NOT SPECIFIED
     Route: 065
  6. VINCRISTINE SULFATE [Suspect]
     Active Substance: VINCRISTINE SULFATE
     Indication: Clear cell sarcoma of the kidney
     Dosage: DOSAGE FORM: NOT SPECIFIED
     Route: 065

REACTIONS (4)
  - Off label use [Unknown]
  - Product use in unapproved indication [Unknown]
  - Neoplasm progression [Unknown]
  - Haematotoxicity [Unknown]
